FAERS Safety Report 5223121-2 (Version None)
Quarter: 2007Q1

REPORT INFORMATION
  Report Type: 
  Country: None (occurrence: None)
  Receive Date: 20070122
  Receipt Date: 20070111
  Transmission Date: 20070707
  Serious: Yes (Life-Threatening, Hospitalization)
  Sender: FDA-Public Use
  Company Number: HQWYE152530AUG06

PATIENT
  Age: 66 Year
  Sex: Female

DRUGS (11)
  1. MYLOTARG [Suspect]
     Indication: ACUTE MYELOID LEUKAEMIA
     Dosage: 6 MG/M^2 1X PER 1 DAY INTRAVENOUS DRIP
     Route: 041
     Dates: start: 20060512, end: 20060512
  2. FAMOTIDINE [Concomitant]
  3. ISEPACIN (ISEPAMICIN SULFATE) [Concomitant]
  4. CLINDAMYCIN PHOSPHATE [Concomitant]
  5. NEUPOGEN [Concomitant]
  6. MYLOTARG [Suspect]
     Dosage: 10 MG/M^2 1X PER 1 DAY INTRAVENOUS DRIP
     Route: 041
     Dates: start: 20060526, end: 20060526
  7. BAKTAR (SULFAMETHOXAZOLE/TRIMETHOPRIM, ) [Suspect]
     Indication: PROPHYLAXIS
     Dosage: ORAL
     Route: 048
     Dates: start: 20060512, end: 20060806
  8. MEROPEN (MEROPENEM, ) [Suspect]
     Dosage: 2 G/DAY INTRASVENOUS DRIP; SEE IMAGE
     Route: 041
     Dates: start: 20060511, end: 20060525
  9. MEROPEN (MEROPENEM, ) [Suspect]
     Dosage: 2 G/DAY INTRASVENOUS DRIP; SEE IMAGE
     Route: 041
     Dates: start: 20060606, end: 20060626
  10. TARGOCID (TIECOPLANIN, ) [Suspect]
     Dosage: 400 MG/DAY INTRAVENOUS DRIP
     Route: 041
     Dates: start: 20060608, end: 20060619
  11. VFEND [Suspect]
     Dosage: 400 MG/DAY INTRAVENOUS DRIP
     Route: 041
     Dates: start: 20060510, end: 20060806

REACTIONS (16)
  - ANOREXIA [None]
  - ASPARTATE AMINOTRANSFERASE INCREASED [None]
  - BLOOD ALKALINE PHOSPHATASE INCREASED [None]
  - BLOOD LACTATE DEHYDROGENASE INCREASED [None]
  - DISSEMINATED INTRAVASCULAR COAGULATION [None]
  - DYSGEUSIA [None]
  - FATIGUE [None]
  - GAMMA-GLUTAMYLTRANSFERASE INCREASED [None]
  - HERPES SIMPLEX [None]
  - HYPOGAMMAGLOBULINAEMIA [None]
  - HYPOKALAEMIA [None]
  - NEUTROPENIA [None]
  - PYREXIA [None]
  - TUMOUR LYSIS SYNDROME [None]
  - WEIGHT INCREASED [None]
  - WHITE BLOOD CELL COUNT DECREASED [None]
